FAERS Safety Report 9522135 (Version 1)
Quarter: 2013Q1

REPORT INFORMATION
  Report Type: Spontaneous
  Country: US (occurrence: None)
  Receive Date: 20130305
  Receipt Date: 20130305
  Transmission Date: 20140127
  Serious: Yes (Other)
  Sender: FDA-Public Use
  Company Number: 163-21880-12032156

PATIENT
  Age: 80 Year
  Sex: Male

DRUGS (2)
  1. REVLIMID (LENALIDOMIDE) (15 MILLIGRAM, CAPSULES) [Suspect]
     Indication: PLASMA CELL MYELOMA
     Dosage: DAILY X 14 / 21 DAYS
     Route: 048
     Dates: start: 20111017, end: 20120319
  2. VELCADE (BORTEZOMIB) (INJECTION) [Concomitant]

REACTIONS (1)
  - Neuropathy peripheral [None]
